FAERS Safety Report 5361563-5 (Version None)
Quarter: 2007Q2

REPORT INFORMATION
  Report Type: 
  Country: None (occurrence: None)
  Receive Date: 20070619
  Receipt Date: 20070611
  Transmission Date: 20071010
  Serious: Yes (Disabling)
  Sender: FDA-Public Use
  Company Number: FR-JNJFOC-20070602711

PATIENT
  Age: 64 Year
  Sex: Female

DRUGS (6)
  1. CAELYX [Suspect]
     Indication: UTERINE NEOPLASM
     Route: 042
  2. BECILAN [Concomitant]
     Route: 048
  3. METEOXANE [Concomitant]
     Route: 065
  4. CODOLIPRANE [Concomitant]
     Route: 048
  5. NEXIUM [Concomitant]
     Route: 048
  6. DESLORATADINE [Concomitant]
     Route: 048

REACTIONS (3)
  - RASH [None]
  - RASH ERYTHEMATOUS [None]
  - TOXIC SKIN ERUPTION [None]
